FAERS Safety Report 7010161-6 (Version None)
Quarter: 2010Q3

REPORT INFORMATION
  Report Type: 
  Country: None (occurrence: None)
  Receive Date: 20100923
  Receipt Date: 20100913
  Transmission Date: 20110219
  Serious: Yes (Other)
  Sender: FDA-Public Use
  Company Number: US-PFIZER INC-2010109166

PATIENT
  Sex: Female
  Weight: 72 kg

DRUGS (11)
  1. CHANTIX [Suspect]
     Indication: SMOKING CESSATION THERAPY
     Dosage: 0.5 MG, DAILY
     Route: 048
     Dates: start: 20100827
  2. BUPROPION [Concomitant]
     Indication: DEPRESSION
     Dosage: UNK
  3. SERTRALINE [Concomitant]
     Indication: DEPRESSION
     Dosage: UNK
  4. LOXAPINE [Concomitant]
     Indication: DISSOCIATIVE IDENTITY DISORDER
     Dosage: UNK
  5. CLONAZEPAM [Concomitant]
     Indication: ANXIETY
     Dosage: UNK
  6. PRAVASTATIN [Concomitant]
     Indication: BLOOD CHOLESTEROL
     Dosage: UNK
  7. HYDROCODONE [Concomitant]
  8. METHADONE [Concomitant]
  9. NAPROXEN [Concomitant]
     Indication: PAIN
  10. TIZANIDINE [Concomitant]
     Indication: PAIN
  11. PAROXETINE [Concomitant]
     Indication: DISSOCIATIVE IDENTITY DISORDER

REACTIONS (3)
  - ANXIETY [None]
  - DISTURBANCE IN ATTENTION [None]
  - MEMORY IMPAIRMENT [None]
